FAERS Safety Report 21957399 (Version 3)
Quarter: 2023Q1

REPORT INFORMATION
  Report Type: Other
  Country: US (occurrence: US)
  Receive Date: 20230206
  Receipt Date: 20230220
  Transmission Date: 20230418
  Serious: Yes (Congenital Anomaly, Other)
  Sender: FDA-Public Use
  Company Number: US-HORMOSAN PHARMA GMBH-2023-00768

PATIENT

DRUGS (5)
  1. EMTRICITABINE AND TENOFOVIR DISOPROXIL FUMARATE [Suspect]
     Active Substance: EMTRICITABINE\TENOFOVIR DISOPROXIL FUMARATE
     Indication: HIV infection
     Dosage: 1 DOSAGE FORM, QD
     Route: 064
     Dates: start: 20220527
  2. GABAPENTIN [Suspect]
     Active Substance: GABAPENTIN
     Indication: Herpes zoster
     Dosage: UNK
     Route: 064
     Dates: start: 202109
  3. BIKTARVY [Suspect]
     Active Substance: BICTEGRAVIR SODIUM\EMTRICITABINE\TENOFOVIR ALAFENAMIDE FUMARATE
     Indication: HIV infection
     Dosage: 1 DOSAGE FORM, QD
     Route: 064
     Dates: end: 20220526
  4. TIVICAY [Suspect]
     Active Substance: DOLUTEGRAVIR SODIUM
     Indication: HIV infection
     Dosage: 1 DOSAGE FORM, QD
     Route: 064
     Dates: start: 20220527
  5. INSULIN NOS [Suspect]
     Active Substance: INSULIN NOS
     Indication: Product used for unknown indication
     Dosage: UNK
     Route: 064

REACTIONS (3)
  - Pelvic kidney [Unknown]
  - Haemangioma [Unknown]
  - Foetal exposure during pregnancy [Unknown]
